FAERS Safety Report 22309955 (Version 1)
Quarter: 2023Q2

REPORT INFORMATION
  Report Type: Spontaneous
  Country: US (occurrence: None)
  Receive Date: 20230510
  Receipt Date: 20230510
  Transmission Date: 20230722
  Serious: No
  Sender: FDA-Public Use
  Company Number: None

PATIENT
  Age: 54 Year
  Sex: Male

DRUGS (1)
  1. ENBREL [Suspect]
     Active Substance: ETANERCEPT
     Indication: Rheumatoid arthritis
     Dosage: FREQUENCY : WEEKLY;?
     Route: 058
     Dates: start: 20230424

REACTIONS (5)
  - Injection site reaction [None]
  - Injection site erythema [None]
  - Injection site warmth [None]
  - Injection site inflammation [None]
  - Injection site pruritus [None]

NARRATIVE: CASE EVENT DATE: 20230508
